FAERS Safety Report 13477571 (Version 1)
Quarter: 2017Q2

REPORT INFORMATION
  Report Type: Spontaneous
  Country: US (occurrence: US)
  Receive Date: 20170425
  Receipt Date: 20170425
  Transmission Date: 20170830
  Serious: Yes (Hospitalization, Other)
  Sender: FDA-Public Use
  Company Number: None

PATIENT
  Age: 5 Year
  Sex: Female
  Weight: 16.6 kg

DRUGS (1)
  1. PEGASPARGASE [Suspect]
     Active Substance: PEGASPARGASE
     Route: 030
     Dates: start: 20160317, end: 20160317

REACTIONS (8)
  - Oxygen saturation decreased [None]
  - Rash [None]
  - Hypersensitivity [None]
  - Blood pressure diastolic decreased [None]
  - Swelling [None]
  - Eyelid disorder [None]
  - Erythema [None]
  - Cyanosis [None]

NARRATIVE: CASE EVENT DATE: 20160317
